FAERS Safety Report 15869212 (Version 1)
Quarter: 2019Q1

REPORT INFORMATION
  Report Type: Spontaneous
  Country: JP (occurrence: JP)
  Receive Date: 20190125
  Receipt Date: 20190125
  Transmission Date: 20190417
  Serious: Yes (Other)
  Sender: FDA-Public Use
  Company Number: JP-IMPAX LABORATORIES, LLC-2019-IPXL-00162

PATIENT

DRUGS (3)
  1. EPIRUBICIN HYDROCHLORIDE. [Suspect]
     Active Substance: EPIRUBICIN HYDROCHLORIDE
     Indication: HEPATOCELLULAR CARCINOMA
     Dosage: UNK
     Route: 065
  2. IODIZED OIL [Suspect]
     Active Substance: IODIZED OIL
     Indication: HEPATOCELLULAR CARCINOMA
     Dosage: UNK
     Route: 065
  3. GELATIN [Suspect]
     Active Substance: GELATIN
     Indication: HEPATOCELLULAR CARCINOMA
     Dosage: UNK, SPONGE
     Route: 065

REACTIONS (1)
  - Arterial injury [Unknown]
